FAERS Safety Report 7224940 (Version 6)
Quarter: 2014Q3

REPORT INFORMATION
  Report Type: Spontaneous
  Country: US (occurrence: US)
  Receive Date: 20091221
  Receipt Date: 20140829
  Transmission Date: 20150326
  Serious: No
  Sender: FDA-Public Use
  Company Number: US-ASTRAZENECA-2009SE05872

PATIENT
  Age: 64 Year
  Sex: Female

DRUGS (12)
  1. HCTZ [Suspect]
     Active Substance: HYDROCHLOROTHIAZIDE
     Route: 065
  2. CYMBALTA [Concomitant]
     Active Substance: DULOXETINE HYDROCHLORIDE
  3. ESTRADIOL. [Concomitant]
     Active Substance: ESTRADIOL
  4. CRESTOR [Suspect]
     Active Substance: ROSUVASTATIN CALCIUM
     Route: 048
  5. CRESTOR [Suspect]
     Active Substance: ROSUVASTATIN CALCIUM
     Dosage: GENERIC
     Route: 048
  6. FENOFIBRATE. [Concomitant]
     Active Substance: FENOFIBRATE
  7. INDAPAMIDE. [Concomitant]
     Active Substance: INDAPAMIDE
  8. CRESTOR [Suspect]
     Active Substance: ROSUVASTATIN CALCIUM
     Route: 048
  9. TRICOR [Concomitant]
     Active Substance: FENOFIBRATE
  10. NEXIUM [Suspect]
     Active Substance: ESOMEPRAZOLE MAGNESIUM
     Route: 048
  11. LISINOPRIL. [Suspect]
     Active Substance: LISINOPRIL
     Route: 048
  12. METFORMIN [Concomitant]
     Active Substance: METFORMIN HYDROCHLORIDE

REACTIONS (7)
  - Gastrooesophageal reflux disease [Unknown]
  - Ear infection [Unknown]
  - Pharyngitis [Unknown]
  - Drug ineffective [Unknown]
  - Blood cholesterol increased [Unknown]
  - Abdominal pain upper [Unknown]
  - Nausea [Unknown]
